FAERS Safety Report 9240838 (Version 1)
Quarter: 2013Q1

REPORT INFORMATION
  Report Type: Spontaneous
  Country: US (occurrence: None)
  Receive Date: 20121120
  Receipt Date: 20121120
  Transmission Date: 20140127
  Serious: No
  Sender: FDA-Public Use
  Company Number: 1000039639

PATIENT
  Age: 67 Year
  Sex: Female

DRUGS (5)
  1. VIIBRYD [Suspect]
     Indication: DEPRESSION
     Dosage: 10MG (10 MG, 1 IN 1 D), ORAL
     Route: 048
     Dates: start: 20121015
  2. LAMICTAL (LAMOTRIGINE) (LAMOTRIGINE) [Concomitant]
     Dosage: 25MG (25 MG, 1 IN 1 D)
  3. ZOCOR (SIMVASTATIN) (SIMVASTATIN) [Concomitant]
     Dosage: 20MG (20 MG, 1 IN 1 D)
  4. AROMASIN (EXEMESTANE) (EXEMESTANE) [Concomitant]
     Dosage: 25MG (25 MG, 1 IN 1 D)
  5. COUMADIN SODIUM (WARFARIN SODIUM) (WARFARIN SODIUM) [Concomitant]

REACTIONS (1)
  - International normalised ratio increased [None]
